FAERS Safety Report 20361193 (Version 1)
Quarter: 2022Q1

REPORT INFORMATION
  Report Type: Spontaneous
  Country: DK (occurrence: DK)
  Receive Date: 20220121
  Receipt Date: 20220121
  Transmission Date: 20220423
  Serious: Yes (Other)
  Sender: FDA-Public Use
  Company Number: DK-ELI_LILLY_AND_COMPANY-DK202201004710

PATIENT
  Age: 49 Year
  Sex: Male

DRUGS (3)
  1. OLANZAPINE [Suspect]
     Active Substance: OLANZAPINE
     Indication: Schizophrenia
     Dosage: 7.5 MG, UNKNOWN
     Route: 065
     Dates: start: 1983
  2. OLANZAPINE [Suspect]
     Active Substance: OLANZAPINE
     Dosage: 40 MG, UNKNOWN
     Route: 065
  3. OLANZAPINE [Suspect]
     Active Substance: OLANZAPINE
     Dosage: 35 MG, DAILY
     Route: 065

REACTIONS (7)
  - Condition aggravated [Unknown]
  - Panic attack [Unknown]
  - Overdose [Unknown]
  - Restlessness [Unknown]
  - Aggression [Unknown]
  - Drug ineffective [Unknown]
  - Product dose omission issue [Unknown]
